FAERS Safety Report 11222529 (Version 1)
Quarter: 2015Q2

REPORT INFORMATION
  Report Type: Spontaneous
  Country: GR (occurrence: GR)
  Receive Date: 20150626
  Receipt Date: 20150626
  Transmission Date: 20150821
  Serious: Yes (Other)
  Sender: FDA-Public Use
  Company Number: GR-PFIZER INC-2015210509

PATIENT
  Age: 76 Year
  Sex: Female

DRUGS (2)
  1. T4 [Concomitant]
     Active Substance: LEVOTHYROXINE
     Dosage: 50 MG, UNK
  2. PHENYTOIN. [Suspect]
     Active Substance: PHENYTOIN
     Dosage: 3 MG/KG, UNK

REACTIONS (3)
  - Somnolence [Unknown]
  - Electroencephalogram abnormal [Unknown]
  - Toxicity to various agents [Unknown]
